FAERS Safety Report 5792550-0 (Version None)
Quarter: 2008Q2

REPORT INFORMATION
  Report Type: 
  Country: None (occurrence: None)
  Receive Date: 20080624
  Receipt Date: 20080613
  Transmission Date: 20081010
  Serious: Yes (Death, Hospitalization, Other)
  Sender: FDA-Public Use
  Company Number: 2007-00342

PATIENT
  Age: 71 Year
  Sex: Female
  Weight: 57 kg

DRUGS (30)
  1. VELCADE [Suspect]
     Indication: MULTIPLE MYELOMA
     Dosage: 1.70 MG, INTRAVENOUS;20.00 MG INTRAVENOUS; 40.00 MG, INTRAVENOUS; 20.00 MG, INTRAVENOUS
     Route: 042
     Dates: start: 20061231, end: 20070103
  2. VELCADE [Suspect]
     Indication: MULTIPLE MYELOMA
     Dosage: 1.70 MG, INTRAVENOUS;20.00 MG INTRAVENOUS; 40.00 MG, INTRAVENOUS; 20.00 MG, INTRAVENOUS
     Route: 042
     Dates: start: 20070104, end: 20070107
  3. VELCADE [Suspect]
     Indication: MULTIPLE MYELOMA
     Dosage: 1.70 MG, INTRAVENOUS;20.00 MG INTRAVENOUS; 40.00 MG, INTRAVENOUS; 20.00 MG, INTRAVENOUS
     Route: 042
     Dates: start: 20061228, end: 20070129
  4. VELCADE [Suspect]
     Indication: MULTIPLE MYELOMA
     Dosage: 1.70 MG, INTRAVENOUS;20.00 MG INTRAVENOUS; 40.00 MG, INTRAVENOUS; 20.00 MG, INTRAVENOUS
     Route: 042
     Dates: start: 20070122, end: 20070130
  5. DEXAMETHASONE TAB [Suspect]
     Indication: MULTIPLE MYELOMA
     Dosage: 40.00 MG, INTRAVENOUS
     Route: 042
     Dates: start: 20061227, end: 20061230
  6. PREDNISOLONE [Concomitant]
  7. LANSOPRAZOLE [Concomitant]
  8. SULFAMETHOXAZOLE AND TRIMETHOPRIM [Concomitant]
  9. DEPAKENE [Concomitant]
  10. ROHYPNOL (FLUNITRAZEPAM) [Concomitant]
  11. MARZULENE S (LEVOGLUTAMIDE, SODIUM GUALENATE) [Concomitant]
  12. LASIX [Concomitant]
  13. MAGNESIUM OXIDE (MAGNESIUM OXIDE) [Concomitant]
  14. VALTREX (VALACICILOVIR HYDROCHLORIDE) [Concomitant]
  15. ALLOID (SODIUM ALGINATE) [Concomitant]
  16. PURSENNID (SENNA LEAF) [Concomitant]
  17. WARFARIN SODIUM [Concomitant]
  18. FLUCONAZOLE [Concomitant]
  19. ALLOPURINOL [Concomitant]
  20. PAZUFLOXACIN (PAZUFLOXACIN) [Concomitant]
  21. ALBUMIN (HUMAN) [Concomitant]
  22. DOPAMINE HYDROCHLORIDE [Concomitant]
  23. SOLDEM 1 (GLUCOSE, SODIUM LACTATE, SODIUM CHLORIDE) [Concomitant]
  24. CALCIUM CHLORIDE ANHYDROUS (CALCIUM CHLORIDE ANHYDROUS) [Concomitant]
  25. SOLDEM 3A (SODIUM LACTATE, POTASSIUM CHLORIDE, CARBOHYDRATES NOS, SODI [Concomitant]
  26. SODIUM BICARBONATE [Concomitant]
  27. NOVOLIN R [Concomitant]
  28. PRIMPERAN TAB [Concomitant]
  29. RED BLOOD CELLS [Concomitant]
  30. PLATELETS [Concomitant]

REACTIONS (25)
  - ANAEMIA [None]
  - BLOOD AMYLASE INCREASED [None]
  - C-REACTIVE PROTEIN INCREASED [None]
  - CARDIAC FAILURE CONGESTIVE [None]
  - COAGULATION TEST ABNORMAL [None]
  - COAGULATION TIME PROLONGED [None]
  - DEHYDRATION [None]
  - DIARRHOEA [None]
  - DISEASE PROGRESSION [None]
  - DYSURIA [None]
  - HEPATIC FUNCTION ABNORMAL [None]
  - HYPOALBUMINAEMIA [None]
  - HYPOKALAEMIA [None]
  - HYPOPROTEINAEMIA [None]
  - HYPOXIA [None]
  - MUSCULAR WEAKNESS [None]
  - NAUSEA [None]
  - NEUROPATHY PERIPHERAL [None]
  - ORTHOSTATIC HYPOTENSION [None]
  - PLASMACYTOMA [None]
  - PLATELET COUNT DECREASED [None]
  - PLEURAL EFFUSION [None]
  - URINARY RETENTION [None]
  - WEIGHT DECREASED [None]
  - WHITE BLOOD CELL COUNT DECREASED [None]
